FAERS Safety Report 13018334 (Version 1)
Quarter: 2016Q4

REPORT INFORMATION
  Report Type: Spontaneous
  Country: GR (occurrence: GR)
  Receive Date: 20161212
  Receipt Date: 20161212
  Transmission Date: 20170207
  Serious: Yes (Hospitalization)
  Sender: FDA-Public Use
  Company Number: GR-IPCA LABORATORIES LIMITED-IPC201611-000987

PATIENT
  Age: 65 Year
  Sex: Female

DRUGS (2)
  1. DALTEPARIN [Suspect]
     Active Substance: DALTEPARIN
     Indication: ANTICOAGULANT THERAPY
  2. WARFARIN [Suspect]
     Active Substance: WARFARIN
     Indication: ANTICOAGULANT THERAPY
     Route: 048

REACTIONS (2)
  - Abdominal wall haematoma [Recovered/Resolved]
  - Vascular pseudoaneurysm [Recovered/Resolved]
